FAERS Safety Report 11903118 (Version 1)
Quarter: 2016Q1

REPORT INFORMATION
  Report Type: Spontaneous
  Country: HR (occurrence: HR)
  Receive Date: 20160108
  Receipt Date: 20160108
  Transmission Date: 20160526
  Serious: Yes (Hospitalization)
  Sender: FDA-Public Use
  Company Number: HR-FRESENIUS KABI-FK201600081

PATIENT
  Age: 79 Year
  Sex: Female

DRUGS (12)
  1. ELICA [Concomitant]
     Active Substance: MOMETASONE FUROATE
     Indication: DEPRESSION
     Route: 048
  2. EDEMID [Concomitant]
     Indication: HYPERTENSION
     Route: 048
  3. CEFUROXIME (MANUFACTURER UNKNOWN) [Suspect]
     Active Substance: CEFUROXIME
     Indication: URINARY TRACT INFECTION
     Route: 042
     Dates: start: 201511
  4. MARTEFARIN [Interacting]
     Active Substance: WARFARIN
     Indication: ATRIAL FIBRILLATION
     Route: 048
     Dates: start: 2014
  5. OKSAZEPAM BELUPO [Concomitant]
     Indication: DEPRESSION
     Route: 048
  6. GLICLADA [Concomitant]
     Active Substance: GLICLAZIDE
     Indication: TYPE 2 DIABETES MELLITUS
     Route: 048
  7. ALOPURINOL [Concomitant]
     Active Substance: ALLOPURINOL
     Indication: HYPERURICAEMIA
     Route: 048
  8. CIPROFLOXACIN (MANUFACTURER UNKNOWN) [Interacting]
     Active Substance: CIPROFLOXACIN
     Indication: URINARY TRACT INFECTION
     Route: 042
     Dates: start: 201511
  9. NINUR [Interacting]
     Active Substance: NITROFURANTOIN
     Indication: URINARY TRACT INFECTION
     Route: 048
     Dates: start: 201511
  10. CONTROLOC [Concomitant]
     Active Substance: PANTOPRAZOLE SODIUM
     Indication: GASTRITIS PROPHYLAXIS
     Route: 048
  11. NORMABEL [Concomitant]
     Active Substance: DIAZEPAM
     Indication: VASCULAR DEMENTIA
     Route: 048
  12. PRAZINE [Concomitant]
     Active Substance: PROMAZINE HYDROCHLORIDE
     Indication: VASCULAR DEMENTIA
     Route: 048

REACTIONS (2)
  - International normalised ratio increased [Recovered/Resolved]
  - Drug interaction [Recovered/Resolved]

NARRATIVE: CASE EVENT DATE: 20151113
